FAERS Safety Report 4389136-1 (Version None)
Quarter: 2004Q3

REPORT INFORMATION
  Report Type: 
  Country: None (occurrence: None)
  Receive Date: 20040702
  Receipt Date: 20030903
  Transmission Date: 20050211
  Serious: Yes (Hospitalization)
  Sender: FDA-Public Use
  Company Number: US-GLAXOSMITHKLINE-A0424513A

PATIENT
  Age: 53 Year
  Sex: Female

DRUGS (1)
  1. PARNATE [Suspect]
     Indication: DEPRESSION
     Dosage: 30MG VARIABLE DOSE
     Route: 048
     Dates: start: 19830101, end: 20030726

REACTIONS (3)
  - ANXIETY [None]
  - DEPRESSION [None]
  - TACHYCARDIA [None]
